FAERS Safety Report 22038091 (Version 1)
Quarter: 2023Q1

REPORT INFORMATION
  Report Type: Spontaneous
  Country: US (occurrence: US)
  Receive Date: 20230227
  Receipt Date: 20230227
  Transmission Date: 20230417
  Serious: No
  Sender: FDA-Public Use
  Company Number: US-IGSA-BIG0018117

PATIENT
  Sex: Male
  Weight: 66.667 kg

DRUGS (5)
  1. PROLASTIN-C LIQUID [Suspect]
     Active Substance: .ALPHA.1-PROTEINASE INHIBITOR HUMAN
     Indication: Alpha-1 antitrypsin deficiency
     Dosage: 3996 MILLIGRAM, Q.WK.
     Route: 042
     Dates: start: 20190412
  2. ALBUTEROL [Concomitant]
     Active Substance: ALBUTEROL
  3. KETOROLAC [Concomitant]
     Active Substance: KETOROLAC TROMETHAMINE
  4. NAPROXEN [Concomitant]
     Active Substance: NAPROXEN
  5. TRAMADOL [Concomitant]
     Active Substance: TRAMADOL

REACTIONS (1)
  - Drug ineffective [Not Recovered/Not Resolved]
